FAERS Safety Report 8069315-2 (Version None)
Quarter: 2012Q1

REPORT INFORMATION
  Report Type: 
  Country: None (occurrence: None)
  Receive Date: 20120125
  Receipt Date: 20120123
  Transmission Date: 20120608
  Serious: Yes (Death)
  Sender: FDA-Public Use
  Company Number: FI-JNJFOC-20120109669

PATIENT
  Age: 60 Year
  Sex: Female

DRUGS (9)
  1. DIAZEPAM [Concomitant]
     Route: 065
  2. HALOPERIDOL [Concomitant]
     Route: 065
  3. RISPERDAL CONSTA [Suspect]
     Indication: SCHIZOPHRENIA
     Route: 030
  4. AN UNKNOWN MEDICATION [Concomitant]
     Route: 065
  5. DIFORMIN [Concomitant]
     Route: 065
  6. SYMBICORT [Concomitant]
     Route: 065
  7. ZYPREXA [Concomitant]
     Route: 065
  8. TEMAZEPAM [Concomitant]
     Route: 065
  9. FURESIS [Concomitant]
     Route: 065

REACTIONS (1)
  - DEATH [None]
